FAERS Safety Report 22198541 (Version 1)
Quarter: 2023Q2

REPORT INFORMATION
  Report Type: Spontaneous
  Country: CH (occurrence: None)
  Receive Date: 20230411
  Receipt Date: 20230411
  Transmission Date: 20230721
  Serious: Yes (Other)
  Sender: FDA-Public Use
  Company Number: 2023A077827

PATIENT
  Age: 74 Year
  Sex: Female

DRUGS (1)
  1. OLAPARIB [Suspect]
     Active Substance: OLAPARIB
     Indication: Ovarian cancer stage III
     Dosage: TWO-YEAR MAINTENANCE TREATMENT
     Route: 048

REACTIONS (2)
  - Microcytic anaemia [Unknown]
  - Lymphopenia [Unknown]
